FAERS Safety Report 19847162 (Version 1)
Quarter: 2021Q3

REPORT INFORMATION
  Report Type: Other
  Country: GB (occurrence: GB)
  Receive Date: 20210917
  Receipt Date: 20210917
  Transmission Date: 20211014
  Serious: Yes (Death, Life-Threatening, Other)
  Sender: FDA-Public Use
  Company Number: GB-ROCHE-2908847

PATIENT

DRUGS (16)
  1. RIBAVIRIN. [Suspect]
     Active Substance: RIBAVIRIN
     Indication: HEPATITIS C
  2. PARITAPREVIR [Suspect]
     Active Substance: PARITAPREVIR
     Indication: HIV INFECTION
     Route: 065
  3. ATAZANAVIR. [Suspect]
     Active Substance: ATAZANAVIR
     Indication: HIV INFECTION
     Route: 065
  4. ATAZANAVIR. [Suspect]
     Active Substance: ATAZANAVIR
     Indication: HEPATITIS C
  5. OMBITASVIR [Suspect]
     Active Substance: OMBITASVIR
     Indication: HEPATITIS C
  6. SOFOSBUVIR [Suspect]
     Active Substance: SOFOSBUVIR
     Indication: HEPATITIS C
  7. SOFOSBUVIR [Suspect]
     Active Substance: SOFOSBUVIR
     Indication: HIV INFECTION
     Route: 065
  8. PARITAPREVIR [Suspect]
     Active Substance: PARITAPREVIR
     Indication: HEPATITIS C
  9. RIBAVIRIN. [Suspect]
     Active Substance: RIBAVIRIN
     Indication: HIV INFECTION
     Route: 065
  10. DACLATASVIR;SOFOSBUVIR [Suspect]
     Active Substance: DACLATASVIR\SOFOSBUVIR
     Indication: HEPATITIS C
  11. DASABUVIR [Suspect]
     Active Substance: DASABUVIR
     Indication: HEPATITIS C
  12. DACLATASVIR;SOFOSBUVIR [Suspect]
     Active Substance: DACLATASVIR\SOFOSBUVIR
     Indication: HIV INFECTION
     Route: 065
  13. OMBITASVIR [Suspect]
     Active Substance: OMBITASVIR
     Indication: HIV INFECTION
     Route: 065
  14. DASABUVIR [Suspect]
     Active Substance: DASABUVIR
     Indication: HIV INFECTION
     Route: 065
  15. LEDIPASVIR;SOFOSBUVIR [Suspect]
     Active Substance: LEDIPASVIR\SOFOSBUVIR
     Indication: HIV INFECTION
     Route: 065
  16. LEDIPASVIR;SOFOSBUVIR [Suspect]
     Active Substance: LEDIPASVIR\SOFOSBUVIR
     Indication: HEPATITIS C

REACTIONS (23)
  - Treatment failure [Fatal]
  - Substance abuse [Unknown]
  - Abdominal pain [Unknown]
  - Aspartate aminotransferase increased [Unknown]
  - Blood creatinine increased [Unknown]
  - Neutropenia [Unknown]
  - Haemoglobin decreased [Unknown]
  - Fatigue [Unknown]
  - Dizziness [Unknown]
  - Anaemia [Unknown]
  - Leukopenia [Unknown]
  - Rash [Unknown]
  - Drug intolerance [Unknown]
  - Nausea [Unknown]
  - Vomiting [Unknown]
  - Virologic failure [Unknown]
  - Alanine aminotransferase increased [Unknown]
  - Blood bilirubin increased [Unknown]
  - Decreased appetite [Unknown]
  - Drug interaction [Unknown]
  - Blood alkaline phosphatase increased [Unknown]
  - Platelet count decreased [Unknown]
  - Neuropathy peripheral [Unknown]
